FAERS Safety Report 9101417 (Version 1)
Quarter: 2013Q1

REPORT INFORMATION
  Report Type: Spontaneous
  Country: US (occurrence: US)
  Receive Date: 20130218
  Receipt Date: 20130218
  Transmission Date: 20140127
  Serious: Yes (Hospitalization, Other)
  Sender: FDA-Public Use
  Company Number: CHPA2013US001948

PATIENT
  Age: 56 Year
  Sex: Female

DRUGS (5)
  1. GAS-X UNKNOWN [Suspect]
     Indication: FLATULENCE
     Dosage: 2 TO 4 STRIPS PER DAY
     Route: 048
     Dates: start: 1999
  2. TRAMADOL [Concomitant]
  3. GABAPENTIN [Concomitant]
     Dosage: 800 MG, TID
  4. DRUG THERAPY NOS [Concomitant]
  5. TYLENOL [Concomitant]

REACTIONS (9)
  - Post procedural complication [Unknown]
  - Spinal cord oedema [Unknown]
  - Infection [Unknown]
  - Neuropathy peripheral [Not Recovered/Not Resolved]
  - Blindness [Unknown]
  - Hypoaesthesia [Unknown]
  - Activities of daily living impaired [Unknown]
  - Nerve injury [Unknown]
  - Abasia [Unknown]
